FAERS Safety Report 8872225 (Version 1)
Quarter: 2012Q4

REPORT INFORMATION
  Report Type: 
  Country: US (occurrence: US)
  Receive Date: 20121026
  Receipt Date: 20121026
  Transmission Date: 20130627
  Serious: No
  Sender: FDA-Public Use
  Company Number: US-AMGEN-USASP2012049308

PATIENT
  Sex: Female
  Weight: 72.56 kg

DRUGS (14)
  1. ENBREL [Suspect]
     Indication: PRODUCT USED FOR UNKNOWN INDICATION
     Dosage: 50 mg, qwk
     Route: 058
  2. PREMARIN [Concomitant]
     Dosage: 0.3 mg, UNK
  3. ESTROVEN [Concomitant]
     Dosage: UNK
  4. VIMOVO [Concomitant]
     Dosage: 375-20
  5. FISH OIL [Concomitant]
     Dosage: UNK
  6. STOOL SOFTENER [Concomitant]
     Dosage: 100-30
  7. FOSAMAX [Concomitant]
     Dosage: 10 mg, UNK
  8. ASPIRIN LOW [Concomitant]
     Dosage: 81 mg,  EC UNK
  9. PREDNISONE [Concomitant]
     Dosage: 10 mg, UNK
  10. METHOTREXATE [Concomitant]
     Dosage: 2.5 mg, UNK
  11. WOMEN^S MULTI [Concomitant]
     Dosage: Advanced
  12. CALCIUM +D                         /00944201/ [Concomitant]
     Dosage: 400-133
  13. OXYCODONE [Concomitant]
     Dosage: 5-325 mg
  14. CYCLOBENZAPRINE [Concomitant]
     Dosage: 10 mg, UNK

REACTIONS (2)
  - Injection site reaction [Unknown]
  - Injection site pain [Unknown]
